FAERS Safety Report 15852854 (Version 2)
Quarter: 2025Q3

REPORT INFORMATION
  Report Type: Spontaneous
  Country: EU (occurrence: EU)
  Receive Date: 20190122
  Receipt Date: 20250724
  Transmission Date: 20251020
  Serious: Yes (Hospitalization, Other)
  Sender: AUROBINDO
  Company Number: EU-AUROBINDO-AUR-APL-2019-002323

PATIENT
  Age: 73 Year
  Sex: Male

DRUGS (5)
  1. ACETAMINOPHEN [Suspect]
     Active Substance: ACETAMINOPHEN
     Indication: Pain
     Route: 065
  2. FLUCLOXACILLIN [Suspect]
     Active Substance: FLUCLOXACILLIN
     Indication: Antibiotic therapy
     Route: 042
  3. Novalgin [Concomitant]
     Indication: Pain
     Route: 065
  4. RIFAMPIN [Concomitant]
     Active Substance: RIFAMPIN
     Indication: Antibiotic therapy
     Route: 048
  5. BUPRENORPHINE [Concomitant]
     Active Substance: BUPRENORPHINE
     Indication: Pain
     Route: 065

REACTIONS (10)
  - Hypertensive crisis [Unknown]
  - Acidosis hyperchloraemic [Unknown]
  - Metabolic acidosis [Unknown]
  - Respiratory alkalosis [Unknown]
  - Agitation [Unknown]
  - Disorientation [Unknown]
  - Aggression [Unknown]
  - Tachycardia [Unknown]
  - Disturbance in attention [Unknown]
  - Tubulointerstitial nephritis [Unknown]
